FAERS Safety Report 12812546 (Version 1)
Quarter: 2016Q4

REPORT INFORMATION
  Report Type: Report from Study
  Country: DE (occurrence: DE)
  Receive Date: 20161005
  Receipt Date: 20161005
  Transmission Date: 20170207
  Serious: Yes (Death)
  Sender: FDA-Public Use
  Company Number: DE-TOLMAR, INC.-2015DE011993

PATIENT
  Age: 92 Year
  Sex: Male

DRUGS (1)
  1. ELIGARD [Suspect]
     Active Substance: LEUPROLIDE ACETATE
     Indication: PRODUCT USED FOR UNKNOWN INDICATION
     Dosage: 22.5 UNK, UNK
     Route: 058
     Dates: start: 20101008, end: 20130708

REACTIONS (1)
  - Death [Fatal]

NARRATIVE: CASE EVENT DATE: 20131008
